FAERS Safety Report 4409857-1 (Version None)
Quarter: 2004Q3

REPORT INFORMATION
  Report Type: 
  Country: None (occurrence: None)
  Receive Date: 20040728
  Receipt Date: 20040607
  Transmission Date: 20050211
  Serious: Yes (Death, Hospitalization)
  Sender: FDA-Public Use
  Company Number: FR-BRISTOL-MYERS SQUIBB COMPANY-12607198

PATIENT
  Age: 65 Year
  Sex: Male
  Weight: 56 kg

DRUGS (5)
  1. TAXOL [Suspect]
     Indication: LUNG NEOPLASM MALIGNANT
     Route: 042
     Dates: start: 20040605, end: 20040605
  2. PARAPLATIN [Concomitant]
     Indication: LUNG NEOPLASM MALIGNANT
     Dosage: AUC 5
     Route: 042
     Dates: start: 20040605, end: 20040605
  3. TRIFLUCAN [Concomitant]
     Route: 042
     Dates: start: 20040603, end: 20040606
  4. OMEPRAZOLE [Concomitant]
     Dates: start: 20040603, end: 20040603
  5. AUGMENTIN '250' [Concomitant]
     Route: 042
     Dates: start: 20040603, end: 20040609

REACTIONS (2)
  - CYTOLYTIC HEPATITIS [None]
  - RESPIRATORY FAILURE [None]
